FAERS Safety Report 9421149 (Version 1)
Quarter: 2013Q3

REPORT INFORMATION
  Report Type: Spontaneous
  Country: GB (occurrence: GB)
  Receive Date: 20130725
  Receipt Date: 20130725
  Transmission Date: 20140515
  Serious: Yes (Other)
  Sender: FDA-Public Use
  Company Number: PHHY2013GB076961

PATIENT
  Age: 55 Year
  Sex: Male
  Weight: 68 kg

DRUGS (6)
  1. AMLODIPINE [Suspect]
     Dates: start: 20130522
  2. AZATHIOPRINE [Concomitant]
     Dates: start: 20130402, end: 20130528
  3. INDAPAMIDE [Concomitant]
     Dates: start: 20130410, end: 20130510
  4. PREDNISOLONE [Concomitant]
     Dates: start: 20130410, end: 20130415
  5. ACICLOVIR [Concomitant]
     Dates: start: 20130522
  6. RAMIPRIL [Concomitant]
     Dates: start: 20130522

REACTIONS (1)
  - Myasthenia gravis [Recovered/Resolved]
